FAERS Safety Report 5388789-9 (Version None)
Quarter: 2007Q3

REPORT INFORMATION
  Report Type: 
  Country: None (occurrence: None)
  Receive Date: 20070712
  Receipt Date: 20060901
  Transmission Date: 20080115
  Serious: Yes (Hospitalization)
  Sender: FDA-Public Use
  Company Number: 2006CL000794

PATIENT
  Age: 53 Year
  Sex: Female
  Weight: 95.2554 kg

DRUGS (8)
  1. SYMLIN [Suspect]
     Indication: TYPE 1 DIABETES MELLITUS
     Dosage: SEE IMAGE
     Route: 058
     Dates: start: 20060407, end: 20060418
  2. SYMLIN [Suspect]
     Indication: TYPE 1 DIABETES MELLITUS
     Dosage: SEE IMAGE
     Route: 058
     Dates: start: 20060418, end: 20060524
  3. FIORICET [Suspect]
     Indication: MIGRAINE
     Dosage: PRN
  4. HUMALOG [Concomitant]
  5. LANTUS [Concomitant]
  6. LEVOXYL [Concomitant]
  7. LIPITOR [Concomitant]
  8. PEPCID [Concomitant]

REACTIONS (6)
  - BILIARY DILATATION [None]
  - BLOOD GLUCOSE INCREASED [None]
  - HYPERHIDROSIS [None]
  - MUSCULAR WEAKNESS [None]
  - PANCREATITIS [None]
  - TREMOR [None]
